FAERS Safety Report 5373604-X (Version None)
Quarter: 2007Q2

REPORT INFORMATION
  Report Type: 
  Country: None (occurrence: None)
  Receive Date: 20070628
  Receipt Date: 20070625
  Transmission Date: 20071010
  Serious: Yes (Other)
  Sender: FDA-Public Use
  Company Number: US-AMGEN-US188958

PATIENT
  Sex: Female
  Weight: 66.7 kg

DRUGS (10)
  1. PANITUMUMAB [Suspect]
     Indication: COLORECTAL CANCER
     Route: 042
     Dates: start: 20060726
  2. IRINOTECAN HCL [Concomitant]
     Route: 042
     Dates: start: 20060726
  3. FOLINIC ACID [Concomitant]
     Route: 042
     Dates: start: 20060726
  4. FLUOROURACIL [Concomitant]
     Route: 042
     Dates: start: 20060726
  5. PROCRIT [Concomitant]
     Route: 058
     Dates: start: 20060705
  6. ALOXI [Concomitant]
     Route: 042
     Dates: start: 20060726
  7. DECADRON [Concomitant]
     Route: 042
     Dates: start: 20060726, end: 20061110
  8. ATROPINE [Concomitant]
     Route: 042
     Dates: start: 20060726, end: 20060918
  9. MILK OF MAGNESIA [Concomitant]
     Route: 048
     Dates: start: 20060724
  10. GLUCOPHAGE [Concomitant]
     Route: 048
     Dates: start: 20040108

REACTIONS (3)
  - DEHYDRATION [None]
  - NAUSEA [None]
  - VOMITING [None]
